FAERS Safety Report 10911507 (Version 5)
Quarter: 2016Q4

REPORT INFORMATION
  Report Type: Spontaneous
  Country: JP (occurrence: JP)
  Receive Date: 20150313
  Receipt Date: 20161208
  Transmission Date: 20170206
  Serious: Yes (Other)
  Sender: FDA-Public Use
  Company Number: JP-ROCHE-1551483

PATIENT
  Age: 77 Year
  Sex: Female
  Weight: 43 kg

DRUGS (11)
  1. NICARDIPINE HYDROCHLORIDE. [Concomitant]
     Active Substance: NICARDIPINE HYDROCHLORIDE
     Indication: AORTIC DISSECTION
     Route: 042
     Dates: start: 20150121, end: 20150221
  2. PROPOFOL. [Concomitant]
     Active Substance: PROPOFOL
     Indication: AORTIC DISSECTION
     Route: 042
     Dates: start: 20150226, end: 20150302
  3. TAKEPRON [Concomitant]
     Active Substance: LANSOPRAZOLE
     Indication: AORTIC DISSECTION
     Route: 048
     Dates: end: 20150304
  4. DOBUPUM [Concomitant]
     Active Substance: DOBUTAMINE HYDROCHLORIDE
     Indication: AORTIC DISSECTION
     Route: 042
     Dates: start: 20150121, end: 20150225
  5. NOREPINEPHRINE [Concomitant]
     Active Substance: NOREPINEPHRINE\NOREPINEPHRINE BITARTRATE
     Indication: AORTIC DISSECTION
     Route: 042
     Dates: start: 20150308, end: 20150308
  6. DEXMEDETOMIDINE HYDROCHLORIDE. [Concomitant]
     Active Substance: DEXMEDETOMIDINE HYDROCHLORIDE
     Indication: AORTIC DISSECTION
     Route: 042
     Dates: start: 20150221, end: 20150306
  7. SEROQUEL [Concomitant]
     Active Substance: QUETIAPINE FUMARATE
     Indication: DELIRIUM
     Route: 048
     Dates: start: 20150304, end: 20150307
  8. ROCEPHIN [Suspect]
     Active Substance: CEFTRIAXONE SODIUM
     Indication: URINARY TRACT INFECTION
     Dosage: DOSAGE IS UNCERTAIN.
     Route: 042
     Dates: start: 20150220, end: 20150311
  9. HEPARIN [Concomitant]
     Active Substance: HEPARIN SODIUM
     Indication: AORTIC DISSECTION
     Route: 042
     Dates: start: 20150226, end: 20150306
  10. TAKEPRON [Concomitant]
     Active Substance: LANSOPRAZOLE
     Indication: AORTIC DISSECTION
     Route: 042
     Dates: start: 20150121
  11. CORETEC [Concomitant]
     Indication: AORTIC DISSECTION
     Route: 065
     Dates: start: 20150121, end: 20150225

REACTIONS (2)
  - Altered state of consciousness [Recovering/Resolving]
  - Encephalopathy [Recovering/Resolving]

NARRATIVE: CASE EVENT DATE: 20150311
